FAERS Safety Report 4602480-5 (Version None)
Quarter: 2005Q1

REPORT INFORMATION
  Report Type: 
  Country: None (occurrence: None)
  Receive Date: 20050307
  Receipt Date: 20050202
  Transmission Date: 20050727
  Serious: Yes (Other)
  Sender: FDA-Public Use
  Company Number: 2005033468

PATIENT
  Age: 37 Year
  Sex: Female
  Weight: 54.4316 kg

DRUGS (4)
  1. ZOLOFT [Suspect]
     Indication: DEPRESSION
     Dosage: 50 MG (50 MG, 1 IN 1 D)
     Dates: start: 20040201
  2. BEXTRA [Suspect]
     Indication: ARTHRITIS
     Dosage: 10 MG (10 MG, 1 IN 1 D)
     Dates: start: 20050123
  3. HYALURONATE SODIUM (HYALURONATE SODIUM) [Suspect]
     Indication: ARTHRITIS
     Dates: start: 20050120
  4. MINOCYCLINE HCL [Suspect]
     Indication: ACNE
     Dates: start: 20041001

REACTIONS (10)
  - ACNE [None]
  - ARTHRITIS [None]
  - DRUG INTERACTION [None]
  - DYSPHAGIA [None]
  - EYE OEDEMA [None]
  - PHARYNGEAL OEDEMA [None]
  - RASH MORBILLIFORM [None]
  - RASH PRURITIC [None]
  - RASH VESICULAR [None]
  - SWELLING FACE [None]
